FAERS Safety Report 7705009-8 (Version None)
Quarter: 2011Q3

REPORT INFORMATION
  Report Type: 
  Country: None (occurrence: None)
  Receive Date: 20110823
  Receipt Date: 20110816
  Transmission Date: 20111222
  Serious: Yes (Hospitalization, Other)
  Sender: FDA-Public Use
  Company Number: GB-SANOFI-AVENTIS-2011SA037834

PATIENT
  Age: 64 Year
  Sex: Female
  Weight: 75.6 kg

DRUGS (18)
  1. ACETAMINOPHEN [Concomitant]
     Route: 048
     Dates: start: 20110412, end: 20110412
  2. METFORMIN HCL [Concomitant]
  3. SOLOSTAR [Suspect]
     Indication: TYPE 2 DIABETES MELLITUS
  4. HYDROXOCOBALAMIN [Concomitant]
     Dosage: DOSE:1 MILLIGRAM(S)/DECILITRE
     Dates: start: 20110331
  5. IBUPROFEN [Concomitant]
     Indication: PAIN
     Route: 048
     Dates: start: 20110413, end: 20110506
  6. DOTAREM [Concomitant]
     Route: 042
     Dates: start: 20110519, end: 20110519
  7. ACETAMINOPHEN [Concomitant]
     Route: 048
     Dates: start: 20110412, end: 20110412
  8. ACETAMINOPHEN [Concomitant]
     Route: 048
     Dates: start: 20110603
  9. SCOPOLAMINE [Concomitant]
     Route: 042
     Dates: start: 20110519, end: 20110519
  10. APIDRA [Suspect]
     Indication: TYPE 2 DIABETES MELLITUS
     Dates: start: 20110525
  11. SOLOSTAR [Suspect]
  12. LANTUS [Suspect]
     Indication: TYPE 2 DIABETES MELLITUS
     Dates: start: 20110228
  13. STUGERON [Concomitant]
     Route: 048
     Dates: start: 20110313, end: 20110313
  14. FERROUS FUMARATE [Concomitant]
     Route: 048
     Dates: start: 20110325
  15. ACETAMINOPHEN [Concomitant]
     Indication: PAIN
     Route: 048
     Dates: start: 20110403, end: 20110404
  16. ACETAMINOPHEN [Concomitant]
     Route: 048
     Dates: start: 20110403, end: 20110404
  17. ACETAMINOPHEN [Concomitant]
     Route: 048
     Dates: start: 20110603
  18. MANNITOL [Concomitant]
     Route: 048
     Dates: start: 20110519, end: 20110519

REACTIONS (2)
  - HYPOGLYCAEMIA [None]
  - WRONG DRUG ADMINISTERED [None]
